FAERS Safety Report 11538336 (Version 1)
Quarter: 2015Q3

REPORT INFORMATION
  Report Type: Spontaneous
  Country: US (occurrence: US)
  Receive Date: 20150922
  Receipt Date: 20150922
  Transmission Date: 20151125
  Serious: No
  Sender: FDA-Public Use
  Company Number: US-ELI_LILLY_AND_COMPANY-US201508009079

PATIENT
  Sex: Male

DRUGS (3)
  1. CIALIS [Suspect]
     Active Substance: TADALAFIL
     Indication: ERECTILE DYSFUNCTION
     Dosage: 5 MG, UNKNOWN
     Route: 048
     Dates: start: 2010
  2. CIALIS [Suspect]
     Active Substance: TADALAFIL
     Dosage: 10 MG, UNKNOWN
     Route: 048
     Dates: start: 2010
  3. CIALIS [Suspect]
     Active Substance: TADALAFIL
     Dosage: 20 MG, PRN
     Route: 048
     Dates: start: 2015

REACTIONS (2)
  - Drug ineffective [Unknown]
  - Weight decreased [Unknown]
